FAERS Safety Report 5184479-6 (Version None)
Quarter: 2006Q4

REPORT INFORMATION
  Report Type: 
  Country: None (occurrence: None)
  Receive Date: 20061220
  Receipt Date: 20061204
  Transmission Date: 20070319
  Serious: Yes (Disabling)
  Sender: FDA-Public Use
  Company Number: PHBS2006BE18711

PATIENT
  Age: 57 Year
  Sex: Female

DRUGS (11)
  1. ZOMETA [Suspect]
     Indication: METASTASES TO BONE
     Dosage: 4 MG, QMO
     Route: 065
     Dates: start: 20030102, end: 20060622
  2. AREDIA [Suspect]
     Indication: METASTASES TO BONE
     Dates: start: 20000101
  3. AROMATASE INHIBITOR [Concomitant]
  4. 5-FU + EPIRUBICIN + CYCLOPHOSPHAMIDE [Concomitant]
  5. TAXOTERE [Concomitant]
  6. XELODA [Concomitant]
  7. NAVELBINE [Concomitant]
  8. TAXOL [Concomitant]
  9. GEMCITABINE [Concomitant]
  10. CISPLATIN [Concomitant]
  11. FLUOROURACIL [Concomitant]

REACTIONS (1)
  - OSTEONECROSIS [None]
